FAERS Safety Report 8765751 (Version 1)
Quarter: 2012Q4

REPORT INFORMATION
  Report Type: 
  Country: US (occurrence: US)
  Receive Date: 20120904
  Receipt Date: 20120904
  Transmission Date: 20130627
  Serious: No
  Sender: FDA-Public Use
  Company Number: US-PFIZER INC-2012214327

PATIENT
  Sex: Male

DRUGS (2)
  1. AVINZA [Suspect]
     Indication: BACK PAIN
     Dosage: 45 mg, UNK
     Route: 048
  2. AVINZA [Suspect]
     Indication: PAIN IN EXTREMITY

REACTIONS (3)
  - Product quality issue [Unknown]
  - Drug effect decreased [Unknown]
  - Product expiration date issue [Unknown]
